FAERS Safety Report 13042156 (Version 2)
Quarter: 2017Q1

REPORT INFORMATION
  Report Type: Spontaneous
  Country: US (occurrence: US)
  Receive Date: 20161219
  Receipt Date: 20170310
  Transmission Date: 20170428
  Serious: No
  Sender: FDA-Public Use
  Company Number: US-PFIZER INC-2016584646

PATIENT
  Age: 65 Year
  Sex: Female
  Weight: 100 kg

DRUGS (1)
  1. AROMASIN [Suspect]
     Active Substance: EXEMESTANE
     Indication: NEOPLASM MALIGNANT
     Dosage: 25 MG, DAILY
     Route: 048
     Dates: start: 2012

REACTIONS (2)
  - Intentional product misuse [Unknown]
  - Alopecia [Not Recovered/Not Resolved]

NARRATIVE: CASE EVENT DATE: 2015
